FAERS Safety Report 4924600-5 (Version None)
Quarter: 2006Q1

REPORT INFORMATION
  Report Type: 
  Country: None (occurrence: None)
  Receive Date: 20060127
  Receipt Date: 20051018
  Transmission Date: 20060701
  Serious: Yes (Other)
  Sender: FDA-Public Use
  Company Number: 2005144882

PATIENT
  Age: 76 Year
  Sex: Male

DRUGS (10)
  1. LYRICA [Suspect]
     Indication: POST HERPETIC NEURALGIA
     Dosage: 150 MG (75 MG, 2 IN 1 D)
     Dates: start: 20050928, end: 20050930
  2. FLOVENT [Concomitant]
  3. ALBUTEROL [Concomitant]
  4. OXYGEN [Concomitant]
  5. ASTELIN [Concomitant]
  6. CARDURA [Concomitant]
  7. HYDROCHLOROTHIAZIDE [Concomitant]
  8. FOSAMAX [Concomitant]
  9. DIOVAN [Concomitant]
  10. TYLENOL [Concomitant]

REACTIONS (2)
  - FEELING DRUNK [None]
  - SOMNOLENCE [None]
